FAERS Safety Report 6547845-X (Version None)
Quarter: 2010Q1

REPORT INFORMATION
  Report Type: 
  Country: None (occurrence: None)
  Receive Date: 20100124
  Receipt Date: 20091019
  Transmission Date: 20100710
  Serious: Yes (Other)
  Sender: FDA-Public Use
  Company Number: US-ALEXION-A200900831

PATIENT
  Sex: Male

DRUGS (23)
  1. SOLIRIS [Suspect]
     Indication: PAROXYSMAL NOCTURNAL HAEMOGLOBINURIA
     Dosage: 600 MG, QW
     Route: 042
     Dates: start: 20081125, end: 20081223
  2. SOLIRIS [Suspect]
     Dosage: 900 MG, Q2W
     Route: 042
     Dates: start: 20081230
  3. CODEINE W/PARACETAMOL [Concomitant]
     Indication: PAIN
     Dosage: 1 TAB, Q4H
  4. KLOR-CON [Concomitant]
     Dosage: 10 MG, QD
  5. MAVIK [Concomitant]
     Dosage: 1 MG, QD
  6. TORSEMIDE [Concomitant]
     Dosage: 20 MG, BID
  7. REQUIP [Concomitant]
     Dosage: 1 MG, 3 AT NIGHT
  8. WARFARIN SODIUM [Concomitant]
     Dosage: 5 MG, QD ADD 3 WK
  9. COREG [Concomitant]
     Dosage: 12.5 MG, BID
  10. COLCHICINE [Concomitant]
     Dosage: 0.6, BID
  11. ALLOPURINOL [Concomitant]
     Dosage: 300 MG, QD
  12. ASPIRIN [Concomitant]
     Dosage: 81 MG, 3 PER WEEK
  13. COMBIVENT [Concomitant]
     Dosage: 2 PUFFS, 2 DAY
  14. PROTONIX                           /01263201/ [Concomitant]
     Dosage: 40 MG, QD
  15. ALBUTEROL SULFATE [Concomitant]
     Dosage: 2.5 MG/3 ML, QID
  16. GLIPIZIDE [Concomitant]
     Dosage: 10 MG, 2 TABLETS, 2 TIMES DAY
  17. AVANDIA                            /01445801/ [Concomitant]
     Dosage: 4 MG, BID
  18. CYANOCOBALAMIN [Concomitant]
     Dosage: 1 CC, 1 MONTH
  19. B COMPLEX                          /00212701/ [Concomitant]
     Dosage: 1 DAY
  20. PREDNISONE [Concomitant]
     Dosage: 10 MG, 1 DAY
  21. SYMBICORT [Concomitant]
     Dosage: 160/4.5, 2 PUFFS, BID
  22. WELLBUTRIN [Concomitant]
     Dosage: 1 MORNING, 1 LUNCH
  23. BUTALBITAL [Concomitant]
     Indication: HEADACHE
     Dosage: 1 EVERY 4 HR, PRN

REACTIONS (2)
  - FALL [None]
  - HIP FRACTURE [None]
